FAERS Safety Report 23882421 (Version 1)
Quarter: 2024Q2

REPORT INFORMATION
  Report Type: Spontaneous
  Country: US (occurrence: US)
  Receive Date: 20240522
  Receipt Date: 20240522
  Transmission Date: 20240716
  Serious: Yes (Hospitalization, Other)
  Sender: FDA-Public Use
  Company Number: US-NOVOPROD-1222005

PATIENT
  Age: 63 Year

DRUGS (2)
  1. WEGOVY [Suspect]
     Active Substance: SEMAGLUTIDE
     Indication: Weight control
     Dosage: UNK
     Route: 058
     Dates: start: 202303
  2. OZEMPIC [Suspect]
     Active Substance: SEMAGLUTIDE
     Indication: Product used for unknown indication
     Dosage: UNK
     Route: 058
     Dates: start: 202303, end: 202310

REACTIONS (7)
  - Colitis ischaemic [Unknown]
  - Sepsis [Unknown]
  - Syncope [Unknown]
  - Necrotising colitis [Unknown]
  - Acute kidney injury [Unknown]
  - Abdominal abscess [Unknown]
  - Malnutrition [Unknown]
